FAERS Safety Report 4533156-0 (Version None)
Quarter: 2004Q4

REPORT INFORMATION
  Report Type: 
  Country: None (occurrence: None)
  Receive Date: 20041210
  Receipt Date: 20040903
  Transmission Date: 20050328
  Serious: Yes (Other)
  Sender: FDA-Public Use
  Company Number: 2004-00469

PATIENT
  Age: 81 Year
  Sex: Female
  Weight: 44.4525 kg

DRUGS (1)
  1. VELCADE [Suspect]
     Indication: MULTIPLE MYELOMA
     Dosage: 1.00 MG, IV BOLUS
     Route: 040
     Dates: start: 20040524

REACTIONS (1)
  - THROMBOCYTOPENIA [None]
